FAERS Safety Report 4939349-2 (Version None)
Quarter: 2006Q1

REPORT INFORMATION
  Report Type: 
  Country: None (occurrence: None)
  Receive Date: 20060306
  Receipt Date: 20060301
  Transmission Date: 20060701
  Serious: Yes (Congenital Anomaly)
  Sender: FDA-Public Use
  Company Number: UKP06000056

PATIENT
  Sex: Male
  Weight: 13.8 kg

DRUGS (3)
  1. ASACOL [Suspect]
     Dosage: TRANSPLACENTAL
     Route: 064
  2. PREDNISOLONE [Suspect]
  3. PROPRANOLOL [Suspect]
     Dosage: TRANSPLACENTAL
     Route: 064

REACTIONS (3)
  - CONGENITAL ANOMALY [None]
  - CONGENITAL HEARING DISORDER [None]
  - MATERNAL DRUGS AFFECTING FOETUS [None]
